FAERS Safety Report 7439154-1 (Version None)
Quarter: 2011Q2

REPORT INFORMATION
  Report Type: 
  Country: None (occurrence: None)
  Receive Date: 20110427
  Receipt Date: 20110415
  Transmission Date: 20111010
  Serious: Yes (Other)
  Sender: FDA-Public Use
  Company Number: JP-JNJFOC-20110400003

PATIENT
  Age: 82 Year
  Sex: Female
  Weight: 53 kg

DRUGS (12)
  1. ASPIRIN [Concomitant]
     Indication: LUMBAR SPINAL STENOSIS
     Route: 048
  2. OPALMON [Concomitant]
     Indication: LUMBAR SPINAL STENOSIS
     Route: 048
  3. GASMOTIN [Concomitant]
     Indication: GASTRITIS
     Route: 048
  4. LANSOPRAZOLE [Concomitant]
     Indication: REFLUX OESOPHAGITIS
     Route: 048
  5. HALCION [Concomitant]
     Indication: INSOMNIA
     Route: 048
  6. REBAMIPIDE [Concomitant]
     Indication: GASTRITIS
     Route: 048
  7. D-ALFA [Concomitant]
     Indication: OSTEOPOROSIS
     Route: 048
  8. GALANTAMINE HYDROBROMIDE [Suspect]
     Indication: DEMENTIA ALZHEIMER'S TYPE
     Route: 048
  9. INTAL [Concomitant]
     Indication: LUMBAR SPINAL STENOSIS
     Route: 048
  10. ACTOS [Concomitant]
     Indication: DIABETES MELLITUS
     Route: 048
  11. TAKEPRON [Concomitant]
     Route: 048
  12. LASIX [Concomitant]
     Indication: CARDIAC FAILURE CHRONIC
     Route: 048

REACTIONS (4)
  - INCORRECT DOSE ADMINISTERED [None]
  - HALLUCINATION [None]
  - DELUSION [None]
  - MEMORY IMPAIRMENT [None]
